FAERS Safety Report 7250196-1 (Version None)
Quarter: 2011Q1

REPORT INFORMATION
  Report Type: 
  Country: None (occurrence: None)
  Receive Date: 20110128
  Receipt Date: 20110114
  Transmission Date: 20110831
  Serious: Yes (Life-Threatening, Hospitalization)
  Sender: FDA-Public Use
  Company Number: US-BAYER-2011-004605

PATIENT
  Weight: 65 kg

DRUGS (6)
  1. BETAPACE [Suspect]
     Indication: CONGESTIVE CARDIOMYOPATHY
     Dosage: 160 MG, BID
     Route: 048
  2. BETAPACE [Suspect]
     Indication: VENTRICULAR TACHYCARDIA
  3. AMIODARONE [Suspect]
     Indication: VENTRICULAR TACHYCARDIA
  4. AMIODARONE [Suspect]
     Indication: CONGESTIVE CARDIOMYOPATHY
     Dosage: 400 MG, QD
  5. PROCAINAMIDE [Suspect]
     Indication: CONGESTIVE CARDIOMYOPATHY
     Dosage: 2 G, TID
  6. PROCAINAMIDE [Suspect]
     Indication: VENTRICULAR TACHYCARDIA

REACTIONS (6)
  - ATRIOVENTRICULAR BLOCK [None]
  - NAUSEA [None]
  - COMPLICATIONS OF TRANSPLANTED HEART [None]
  - DIZZINESS [None]
  - VISION BLURRED [None]
  - CARDIAC ARREST [None]
